FAERS Safety Report 10138153 (Version 6)
Quarter: 2014Q3

REPORT INFORMATION
  Report Type: Spontaneous
  Country: US (occurrence: US)
  Receive Date: 20140429
  Receipt Date: 20140923
  Transmission Date: 20150326
  Serious: Yes (Hospitalization, Other)
  Sender: FDA-Public Use
  Company Number: US-RB-065375-14

PATIENT
  Age: 4 Year
  Sex: Male
  Weight: 19 kg

DRUGS (3)
  1. DELSYM [Suspect]
     Active Substance: DEXTROMETHORPHAN
     Indication: NASOPHARYNGITIS
     Dosage: 2.5ML AT ABOUT 9AM ON 12-APR-2014 AND THEN AGAIN 2.5ML AT ABOUT 9PM THAT NIGHT.
     Route: 048
     Dates: start: 20140412
  2. DELSYM [Suspect]
     Active Substance: DEXTROMETHORPHAN
     Indication: INFLUENZA
     Dosage: 2.5ML AT ABOUT 9AM ON 12-APR-2014 AND THEN AGAIN 2.5ML AT ABOUT 9PM THAT NIGHT.
     Route: 048
     Dates: start: 20140412
  3. DELSYM [Suspect]
     Active Substance: DEXTROMETHORPHAN
     Indication: INFLUENZA
     Dosage: 2.5ML AT ABOUT 9AM ON 12-APR-2014 AND THEN AGAIN 2.5ML AT ABOUT 9PM THAT NIGHT.
     Route: 048
     Dates: start: 20140412

REACTIONS (31)
  - Hypertension [Recovered/Resolved]
  - Abdominal pain [Recovered/Resolved]
  - Mydriasis [Recovered/Resolved]
  - Discomfort [Recovered/Resolved]
  - Tachypnoea [Recovered/Resolved]
  - Hallucination, visual [Recovered/Resolved]
  - Altered state of consciousness [Recovered/Resolved]
  - Hypersensitivity [Recovered/Resolved]
  - Urinary retention [Recovered/Resolved]
  - Flushing [Recovered/Resolved]
  - Repetitive speech [Recovered/Resolved]
  - Tension [Recovered/Resolved]
  - Dizziness [Recovered/Resolved]
  - Restlessness [Recovered/Resolved]
  - Otorrhoea [Recovered/Resolved]
  - Movement disorder [Recovered/Resolved]
  - Dysarthria [Recovered/Resolved]
  - Cough [Recovered/Resolved]
  - Urine output decreased [Recovered/Resolved]
  - Tachycardia [Recovered/Resolved]
  - Abnormal behaviour [Recovered/Resolved]
  - Unevaluable event [Recovered/Resolved]
  - Ear pain [Recovered/Resolved]
  - Confusional state [Recovered/Resolved]
  - Mental status changes [Recovered/Resolved]
  - Agitation [Recovered/Resolved]
  - Irritability [Recovered/Resolved]
  - Screaming [Recovered/Resolved]
  - Dystonia [Recovered/Resolved]
  - Lacrimation decreased [Recovered/Resolved]
  - Paradoxical drug reaction [Recovered/Resolved]

NARRATIVE: CASE EVENT DATE: 20140413
